FAERS Safety Report 22151933 (Version 1)
Quarter: 2023Q1

REPORT INFORMATION
  Report Type: Spontaneous
  Country: US (occurrence: US)
  Receive Date: 20230329
  Receipt Date: 20230329
  Transmission Date: 20230417
  Serious: Yes (Other)
  Sender: FDA-Public Use
  Company Number: US-HORIZON THERAPEUTICS-HZN-2023-002300

PATIENT

DRUGS (5)
  1. PREDNISONE [Suspect]
     Active Substance: PREDNISONE
     Indication: Radiation pneumonitis
     Dosage: 40 MG, EACH DAY FOR TWO WEEKS  (8 WEEK PREDNISONE TAPER DOSE)
     Route: 048
  2. PREDNISONE [Suspect]
     Active Substance: PREDNISONE
     Dosage: DOSE TAPER OF 10 MG EVERY 2 WEEKS FOR FOUR WEEKS
     Route: 048
  3. PREDNISONE [Suspect]
     Active Substance: PREDNISONE
     Dosage: FOLLOWING 10 MG FOR 1 WEEK
     Route: 048
  4. PREDNISONE [Suspect]
     Active Substance: PREDNISONE
     Dosage: 5 MG FOR 1 WEEK
     Route: 048
  5. NINTEDANIB [Suspect]
     Active Substance: NINTEDANIB
     Indication: Radiation pneumonitis
     Dosage: 150 MG, BID, FOR 12 WEEKS
     Route: 048

REACTIONS (2)
  - Embolism [Unknown]
  - Off label use [Unknown]
